FAERS Safety Report 4310216-0 (Version None)
Quarter: 2004Q1

REPORT INFORMATION
  Report Type: 
  Country: None (occurrence: None)
  Receive Date: 20040301
  Receipt Date: 20040301
  Transmission Date: 20041129
  Serious: Yes (Hospitalization, Other)
  Sender: FDA-Public Use
  Company Number: None

PATIENT
  Age: 28 Year
  Sex: Female
  Weight: 52.1637 kg

DRUGS (2)
  1. EFFEXOR XR [Suspect]
     Indication: ANXIETY
     Dosage: 300 MG DAY ORAL
     Route: 048
     Dates: start: 20030129, end: 20030830
  2. ANTI-HISTAMINE TAB [Concomitant]

REACTIONS (9)
  - ABNORMAL BEHAVIOUR [None]
  - ACTIVITIES OF DAILY LIVING IMPAIRED [None]
  - DIZZINESS [None]
  - DYSKINESIA [None]
  - MALAISE [None]
  - NAUSEA [None]
  - SUICIDE ATTEMPT [None]
  - VOMITING [None]
  - WEIGHT DECREASED [None]
